FAERS Safety Report 6698668-2 (Version None)
Quarter: 2010Q2

REPORT INFORMATION
  Report Type: 
  Country: None (occurrence: None)
  Receive Date: 20100427
  Receipt Date: 20100414
  Transmission Date: 20101027
  Serious: Yes (Other)
  Sender: FDA-Public Use
  Company Number: PHHY2010AT23864

PATIENT
  Sex: Male
  Weight: 83 kg

DRUGS (3)
  1. CERTICAN [Suspect]
     Indication: HEART TRANSPLANT
     Dosage: 1.5 MG DAILY
     Route: 048
     Dates: start: 20100322, end: 20100412
  2. CLOPIDOGREL [Suspect]
     Indication: ARTERIAL STENOSIS
     Dosage: 75 MG, DAILY
     Route: 048
     Dates: start: 20100314
  3. ASPIRIN [Concomitant]
     Indication: HEART TRANSPLANT
     Dosage: 100 MG DAILY
     Route: 048
     Dates: start: 20090401

REACTIONS (3)
  - LEUKOPENIA [None]
  - SPONTANEOUS HAEMATOMA [None]
  - THROMBOCYTOPENIA [None]
